FAERS Safety Report 8545952-3 (Version None)
Quarter: 2012Q3

REPORT INFORMATION
  Report Type: 
  Country: None (occurrence: None)
  Receive Date: 20120727
  Receipt Date: 20120126
  Transmission Date: 20120928
  Serious: No
  Sender: FDA-Public Use
  Company Number: US-ASTRAZENECA-2011SE71900

PATIENT
  Age: 31 Year
  Sex: Male

DRUGS (3)
  1. KLONOPIN [Concomitant]
     Indication: ANXIETY
  2. SEROQUEL [Suspect]
     Indication: INSOMNIA
     Route: 048
  3. KLONOPIN [Concomitant]
     Indication: INSOMNIA

REACTIONS (5)
  - OFF LABEL USE [None]
  - INSOMNIA [None]
  - WITHDRAWAL SYNDROME [None]
  - DRUG DOSE OMISSION [None]
  - INFLUENZA [None]
